FAERS Safety Report 9023245 (Version 1)
Quarter: 2013Q1

REPORT INFORMATION
  Report Type: Spontaneous
  Country: US (occurrence: US)
  Receive Date: 20130120
  Receipt Date: 20130120
  Transmission Date: 20140127
  Serious: No
  Sender: FDA-Public Use
  Company Number: US-ALLERGAN-1214132US

PATIENT
  Sex: Female

DRUGS (4)
  1. BOTOX? [Suspect]
     Indication: HEADACHE
     Dosage: UNK UNK, SINGLE
     Route: 030
     Dates: start: 20120813, end: 20120813
  2. ESTRADIOL [Concomitant]
     Indication: HORMONE REPLACEMENT THERAPY
     Dosage: UNK UNK, QD
     Route: 048
  3. VITAMIN B12                        /00056201/ [Concomitant]
     Indication: PRODUCT USED FOR UNKNOWN INDICATION
     Dosage: UNK
  4. BENAZEPRIL [Concomitant]
     Indication: HYPERTENSION
     Dosage: UNK

REACTIONS (4)
  - Joint range of motion decreased [Recovered/Resolved]
  - Rash erythematous [Recovered/Resolved]
  - Injection site reaction [Recovered/Resolved]
  - Injection site pain [Recovered/Resolved]
